FAERS Safety Report 5097617-0 (Version None)
Quarter: 2006Q3

REPORT INFORMATION
  Report Type: 
  Country: None (occurrence: None)
  Receive Date: 20060901
  Receipt Date: 20060821
  Transmission Date: 20061208
  Serious: Yes (Other)
  Sender: FDA-Public Use
  Company Number: 2006101751

PATIENT
  Sex: Female

DRUGS (2)
  1. ZYVOX [Suspect]
     Indication: VESTIBULAR DISORDER
  2. NEOCIN (NEOMYCIN SULFATE) [Concomitant]

REACTIONS (4)
  - BONE DENSITY DECREASED [None]
  - ENTEROCOCCAL INFECTION [None]
  - OSTEOMYELITIS [None]
  - STAPHYLOCOCCAL INFECTION [None]
